FAERS Safety Report 4664216-1 (Version None)
Quarter: 2005Q2

REPORT INFORMATION
  Report Type: 
  Country: None (occurrence: None)
  Receive Date: 20050516
  Receipt Date: 20050504
  Transmission Date: 20051028
  Serious: Yes (Other)
  Sender: FDA-Public Use
  Company Number: 2005069912

PATIENT
  Age: 44 Year
  Sex: Female

DRUGS (3)
  1. DEPO-PROVERA [Suspect]
     Indication: CONTRACEPTION
     Dosage: 150 MG (150 MG, 1 ST INJECTION, TRIMESTRAL), INTRAMUSCULAR
     Route: 030
     Dates: start: 20050318, end: 20050318
  2. DIPYRONE TAB [Concomitant]
  3. ISPAGHULA HUSK (ISPAGHULA HUSK) [Concomitant]

REACTIONS (2)
  - THERAPY NON-RESPONDER [None]
  - VAGINAL HAEMORRHAGE [None]
